FAERS Safety Report 6393794-X (Version None)
Quarter: 2009Q4

REPORT INFORMATION
  Report Type: 
  Country: None (occurrence: None)
  Receive Date: 20091008
  Receipt Date: 20090930
  Transmission Date: 20100525
  Serious: Yes (Other)
  Sender: FDA-Public Use
  Company Number: US-ELI_LILLY_AND_COMPANY-US200909007155

PATIENT
  Age: 69 Year
  Sex: Female

DRUGS (4)
  1. ALIMTA [Suspect]
     Indication: MESOTHELIOMA
     Dates: start: 20080101
  2. ALIMTA [Suspect]
     Dates: start: 20090101
  3. CISPLATIN [Concomitant]
     Indication: MESOTHELIOMA
     Dosage: UNK, UNK
     Dates: start: 20080101
  4. VITAMINS NOS [Concomitant]
     Indication: VITAMIN SUPPLEMENTATION

REACTIONS (5)
  - ASTHENIA [None]
  - BURNING SENSATION [None]
  - DEAFNESS [None]
  - MESOTHELIOMA MALIGNANT RECURRENT [None]
  - NAUSEA [None]
